FAERS Safety Report 7110647-X (Version None)
Quarter: 2010Q4

REPORT INFORMATION
  Report Type: 
  Country: None (occurrence: None)
  Receive Date: 20101118
  Receipt Date: 20101116
  Transmission Date: 20110411
  Serious: Yes (Other)
  Sender: FDA-Public Use
  Company Number: A0887338A

PATIENT
  Age: 68 Year
  Sex: Female

DRUGS (1)
  1. NICODERM CQ [Suspect]
     Indication: SMOKING CESSATION THERAPY
     Route: 062
     Dates: start: 20101009, end: 20101017

REACTIONS (9)
  - BEDRIDDEN [None]
  - DECREASED APPETITE [None]
  - DIARRHOEA [None]
  - FEELING ABNORMAL [None]
  - FLATULENCE [None]
  - HAEMATOCHEZIA [None]
  - MALAISE [None]
  - OVERDOSE [None]
  - PRODUCT QUALITY ISSUE [None]
